FAERS Safety Report 20092198 (Version 2)
Quarter: 2022Q2

REPORT INFORMATION
  Report Type: Spontaneous
  Country: US (occurrence: US)
  Receive Date: 20211119
  Receipt Date: 20220510
  Transmission Date: 20220721
  Serious: Yes (Other)
  Sender: FDA-Public Use
  Company Number: US-JUBILANT CADISTA PHARMACEUTICALS-2021JUB00416

PATIENT
  Age: 53 Year
  Sex: Male

DRUGS (3)
  1. VALACYCLOVIR HYDROCHLORIDE [Suspect]
     Active Substance: VALACYCLOVIR HYDROCHLORIDE
     Indication: Varicella zoster virus infection
     Dosage: UNK
     Route: 048
  2. VALACYCLOVIR HYDROCHLORIDE [Suspect]
     Active Substance: VALACYCLOVIR HYDROCHLORIDE
     Indication: Labyrinthitis
  3. ACYCLOVIR [Suspect]
     Active Substance: ACYCLOVIR
     Route: 042

REACTIONS (2)
  - Neurotoxicity [Recovering/Resolving]
  - Encephalopathy [Recovering/Resolving]
